FAERS Safety Report 21749258 (Version 4)
Quarter: 2023Q1

REPORT INFORMATION
  Report Type: Spontaneous
  Country: US (occurrence: US)
  Receive Date: 20221219
  Receipt Date: 20230314
  Transmission Date: 20230417
  Serious: No
  Sender: FDA-Public Use
  Company Number: US-Calliditas-2022CAL00619

PATIENT
  Age: 63 Year
  Sex: Female

DRUGS (11)
  1. TARPEYO [Suspect]
     Active Substance: BUDESONIDE
     Indication: IgA nephropathy
     Dosage: 16 MG (4 MG CAPSULES) ONCE DAILY
     Route: 048
     Dates: start: 20221129, end: 202302
  2. CYMBALTA [Concomitant]
     Active Substance: DULOXETINE HYDROCHLORIDE
  3. FISH OIL [Concomitant]
     Active Substance: FISH OIL
  4. VITAMIN D3 [Concomitant]
     Active Substance: CHOLECALCIFEROL
  5. LOSARTAN [Concomitant]
     Active Substance: LOSARTAN
  6. FLEXERIL [Concomitant]
     Active Substance: CYCLOBENZAPRINE HYDROCHLORIDE
  7. ATORVASTATIN [Concomitant]
     Active Substance: ATORVASTATIN
  8. TRAMADOL [Concomitant]
     Active Substance: TRAMADOL
     Dosage: AS NECESSARY
  9. CHANTIX [Concomitant]
     Active Substance: VARENICLINE TARTRATE
  10. VITAMINS [Concomitant]
     Active Substance: VITAMINS
  11. SOLIQUA 100/33 [Concomitant]
     Active Substance: INSULIN GLARGINE\LIXISENATIDE

REACTIONS (7)
  - Nasopharyngitis [Recovered/Resolved]
  - Abdominal discomfort [Recovered/Resolved]
  - Diarrhoea [Recovered/Resolved]
  - Dehydration [Recovered/Resolved]
  - Frequent bowel movements [Recovered/Resolved]
  - Heart rate increased [Recovered/Resolved]
  - Protein urine present [Unknown]

NARRATIVE: CASE EVENT DATE: 20221201
